FAERS Safety Report 6396796-2 (Version None)
Quarter: 2009Q4

REPORT INFORMATION
  Report Type: 
  Country: None (occurrence: None)
  Receive Date: 20091012
  Receipt Date: 20090803
  Transmission Date: 20100525
  Serious: No
  Sender: FDA-Public Use
  Company Number: US-ASTRAZENECA-2009SE06746

PATIENT
  Sex: Female

DRUGS (3)
  1. SYMBICORT [Suspect]
     Dosage: 2 DOSES DAILY
     Route: 055
  2. SPIRIVA [Concomitant]
     Route: 055
  3. OXYGEN [Concomitant]
     Route: 055

REACTIONS (2)
  - INCREASED UPPER AIRWAY SECRETION [None]
  - MICTURITION DISORDER [None]
